FAERS Safety Report 6731022-3 (Version None)
Quarter: 2010Q2

REPORT INFORMATION
  Report Type: 
  Country: None (occurrence: None)
  Receive Date: 20100518
  Receipt Date: 20100507
  Transmission Date: 20101027
  Serious: Yes (Other)
  Sender: FDA-Public Use
  Company Number: US-JNJFOC-20100503946

PATIENT
  Age: 15 Month
  Sex: Female

DRUGS (4)
  1. CHILDREN'S MOTRIN [Suspect]
     Route: 048
  2. CHILDREN'S MOTRIN [Suspect]
     Indication: PYREXIA
     Route: 048
  3. MOTRIN INFANTS [Suspect]
  4. MOTRIN INFANTS [Suspect]
     Indication: PYREXIA

REACTIONS (4)
  - FEBRILE CONVULSION [None]
  - LETHARGY [None]
  - PRODUCT MEASURED POTENCY ISSUE [None]
  - PYREXIA [None]
